FAERS Safety Report 4343787-9 (Version None)
Quarter: 2004Q2

REPORT INFORMATION
  Report Type: 
  Country: None (occurrence: None)
  Receive Date: 20040421
  Receipt Date: 20040421
  Transmission Date: 20050107
  Serious: Yes (Life-Threatening, Hospitalization)
  Sender: FDA-Public Use
  Company Number: None

PATIENT
  Age: 43 Year
  Sex: Female
  Weight: 94.3482 kg

DRUGS (1)
  1. BENZOCAINE SPRAY [Suspect]
     Indication: ENDOSCOPY
     Dosage: NOT SURE, BUT GENERALLY QUITE A BIT

REACTIONS (1)
  - ACQUIRED METHAEMOGLOBINAEMIA [None]
